FAERS Safety Report 7507537-7 (Version None)
Quarter: 2011Q2

REPORT INFORMATION
  Report Type: 
  Country: None (occurrence: None)
  Receive Date: 20110526
  Receipt Date: 20110328
  Transmission Date: 20111010
  Serious: No
  Sender: FDA-Public Use
  Company Number: US-MYLANLABS-2011S1006572

PATIENT
  Sex: Female

DRUGS (1)
  1. ZOLPIDEM TARTRATE [Suspect]
     Indication: INSOMNIA
     Dates: start: 20110328

REACTIONS (3)
  - DRUG INEFFECTIVE [None]
  - DRUG EFFECT DELAYED [None]
  - INSOMNIA [None]
